FAERS Safety Report 13818546 (Version 2)
Quarter: 2017Q3

REPORT INFORMATION
  Report Type: Report from Study
  Country: PA (occurrence: PA)
  Receive Date: 20170801
  Receipt Date: 20170813
  Transmission Date: 20171127
  Serious: Yes (Other)
  Sender: FDA-Public Use
  Company Number: PHHY2017PA071984

PATIENT
  Sex: Female
  Weight: 51.7 kg

DRUGS (2)
  1. AROMASIN [Concomitant]
     Active Substance: EXEMESTANE
     Indication: PRODUCT USED FOR UNKNOWN INDICATION
     Dosage: 25 MG, QD
     Route: 048
  2. AFINITOR [Suspect]
     Active Substance: EVEROLIMUS
     Indication: BREAST CANCER METASTATIC
     Dosage: 10 MG, QD
     Route: 048

REACTIONS (6)
  - Endocrine disorder [Unknown]
  - Dry skin [Unknown]
  - Liver injury [Recovering/Resolving]
  - Oedema peripheral [Not Recovered/Not Resolved]
  - Rash [Unknown]
  - Peripheral swelling [Not Recovered/Not Resolved]
